FAERS Safety Report 19458293 (Version 2)
Quarter: 2021Q3

REPORT INFORMATION
  Report Type: Spontaneous
  Country: PT (occurrence: PT)
  Receive Date: 20210624
  Receipt Date: 20210709
  Transmission Date: 20211014
  Serious: Yes (Other)
  Sender: FDA-Public Use
  Company Number: PT-PFIZER INC-2021696334

PATIENT
  Age: 40 Year
  Sex: Male

DRUGS (10)
  1. GABAPENTIN. [Suspect]
     Active Substance: GABAPENTIN
     Indication: TRIGEMINAL NEURALGIA
     Dosage: 1200 MG (6/6H)
  2. FAMPRIDINE [Concomitant]
     Active Substance: DALFAMPRIDINE
  3. BACLOFEN. [Concomitant]
     Active Substance: BACLOFEN
  4. OCRELIZUMAB. [Concomitant]
     Active Substance: OCRELIZUMAB
     Dosage: 600 MG (6/6 MONTHS)
     Route: 042
  5. AMANTADINE. [Concomitant]
     Active Substance: AMANTADINE HYDROCHLORIDE
     Dosage: 100 MG, 2X/DAY
  6. AMANTADINE. [Concomitant]
     Active Substance: AMANTADINE HYDROCHLORIDE
  7. FAMPRIDINE [Concomitant]
     Active Substance: DALFAMPRIDINE
     Dosage: UNK, 2X/DAY (12?12)
  8. OCRELIZUMAB. [Concomitant]
     Active Substance: OCRELIZUMAB
  9. GABAPENTIN. [Suspect]
     Active Substance: GABAPENTIN
     Dosage: 900 MG, 4X/DAY
     Route: 048
     Dates: start: 20201019
  10. BACLOFEN. [Concomitant]
     Active Substance: BACLOFEN
     Dosage: 50 MG, 2X/DAY (IN THE MORNING AND IN THE EVENING)

REACTIONS (3)
  - Fatigue [Not Recovered/Not Resolved]
  - Asthenia [Not Recovered/Not Resolved]
  - Lymphopenia [Unknown]

NARRATIVE: CASE EVENT DATE: 20201019
